FAERS Safety Report 10149256 (Version 1)
Quarter: 2014Q2

REPORT INFORMATION
  Report Type: Spontaneous
  Country: US (occurrence: None)
  Receive Date: 20140430
  Receipt Date: 20140430
  Transmission Date: 20141212
  Serious: Yes (Other)
  Sender: FDA-Public Use
  Company Number: SIM_00566_2014

PATIENT
  Sex: Male
  Weight: 90.72 kg

DRUGS (2)
  1. DRY EYE RELIEF (HOMEOPATHIC) [Suspect]
     Indication: PRODUCT USED FOR UNKNOWN INDICATION
     Dosage: RIGHT
     Route: 047
     Dates: start: 2010, end: 20140410
  2. BRIMONIDINE TARTRATE [Concomitant]

REACTIONS (2)
  - Retinal aneurysm [None]
  - Cataract [None]
